FAERS Safety Report 9506491 (Version 2)
Quarter: 2014Q1

REPORT INFORMATION
  Report Type: Spontaneous
  Country: NO (occurrence: None)
  Receive Date: 20130904
  Receipt Date: 20140227
  Transmission Date: 20141002
  Serious: Yes (Death)
  Sender: FDA-Public Use
  Company Number: AUR-APL-2013-07324

PATIENT
  Age: 65 Year
  Sex: Male

DRUGS (1)
  1. CLOPIDOGREL [Suspect]
     Indication: PRODUCT USED FOR UNKNOWN INDICATION

REACTIONS (12)
  - Blindness [None]
  - Dyspnoea [None]
  - Disorientation [None]
  - Dizziness [None]
  - Headache [None]
  - Off label use [None]
  - Organ failure [None]
  - Petechiae [None]
  - Sepsis [None]
  - Systemic inflammatory response syndrome [None]
  - Asthenia [None]
  - Confusional state [None]
